FAERS Safety Report 6825393-7 (Version None)
Quarter: 2010Q3

REPORT INFORMATION
  Report Type: 
  Country: None (occurrence: None)
  Receive Date: 20100708
  Receipt Date: 20061211
  Transmission Date: 20110219
  Serious: No
  Sender: FDA-Public Use
  Company Number: US-PFIZER INC-2006153961

PATIENT
  Sex: Female
  Weight: 81.65 kg

DRUGS (6)
  1. CHANTIX [Suspect]
     Indication: EX-TOBACCO USER
     Dates: start: 20061121
  2. LEXAPRO [Concomitant]
  3. LEVOXYL [Concomitant]
     Indication: THYROID DISORDER
  4. GLUCOPHAGE [Concomitant]
  5. ATENOLOL [Concomitant]
  6. KLONOPIN [Concomitant]
     Indication: SLEEP DISORDER

REACTIONS (3)
  - EATING DISORDER SYMPTOM [None]
  - NAUSEA [None]
  - THYROID FUNCTION TEST ABNORMAL [None]
